FAERS Safety Report 13785608 (Version 3)
Quarter: 2017Q4

REPORT INFORMATION
  Report Type: Spontaneous
  Country: US (occurrence: US)
  Receive Date: 20170725
  Receipt Date: 20171006
  Transmission Date: 20180320
  Serious: No
  Sender: FDA-Public Use
  Company Number: US-CELGENEUS-USA-20170702326

PATIENT
  Age: 61 Year
  Sex: Male

DRUGS (3)
  1. OTEZLA [Suspect]
     Active Substance: APREMILAST
     Indication: PSORIATIC ARTHROPATHY
     Dosage: 10 MILLIGRAM
     Route: 048
     Dates: start: 20170616
  2. OTEZLA [Suspect]
     Active Substance: APREMILAST
     Route: 048
     Dates: end: 201706
  3. OTEZLA [Suspect]
     Active Substance: APREMILAST
     Route: 048

REACTIONS (6)
  - Arthralgia [Recovered/Resolved]
  - Pain [Recovering/Resolving]
  - Dizziness [Unknown]
  - Dyspnoea [Recovered/Resolved]
  - Lip swelling [Recovered/Resolved]
  - Psoriatic arthropathy [Recovering/Resolving]

NARRATIVE: CASE EVENT DATE: 2017
